FAERS Safety Report 9999819 (Version 2)
Quarter: 2014Q1

REPORT INFORMATION
  Report Type: Spontaneous
  Country: CH (occurrence: CH)
  Receive Date: 20140312
  Receipt Date: 20140312
  Transmission Date: 20141002
  Serious: Yes (Hospitalization, Other)
  Sender: FDA-Public Use
  Company Number: CH-PFIZER INC-2014043081

PATIENT
  Age: 81 Year
  Sex: Male
  Weight: 89 kg

DRUGS (10)
  1. LYRICA [Suspect]
     Indication: POST HERPETIC NEURALGIA
     Dosage: 75 MG, 1X/DAY
     Route: 048
     Dates: start: 20100916, end: 20100920
  2. NORVASC [Concomitant]
     Dosage: 10 MG, UNK
  3. PREDNISONE [Concomitant]
     Dosage: 2.5 MG, UNK
  4. PANTOZOL [Concomitant]
     Dosage: 20 MG, UNK
  5. SINTROM [Concomitant]
  6. ASPIRIN C [Concomitant]
  7. MULTAQ [Concomitant]
     Dosage: 400 UNK, UNK
  8. BELOC ZOK [Concomitant]
     Dosage: 25 UNK, UNK
  9. PRAVALOTIN [Concomitant]
     Dosage: 40 UNK, UNK
  10. SERETIDE [Concomitant]
     Dosage: 250 UNK, 2X/DAY

REACTIONS (4)
  - Confusional state [Recovered/Resolved]
  - Hallucination, visual [Recovered/Resolved]
  - Balance disorder [Recovered/Resolved]
  - Creatinine renal clearance decreased [Unknown]
